FAERS Safety Report 6272832-9 (Version None)
Quarter: 2009Q3

REPORT INFORMATION
  Report Type: 
  Country: None (occurrence: None)
  Receive Date: 20090717
  Receipt Date: 20090716
  Transmission Date: 20100115
  Serious: Yes (Hospitalization)
  Sender: FDA-Public Use
  Company Number: FR-ABBOTT-09P-056-0584306-00

PATIENT
  Sex: Female

DRUGS (7)
  1. KALETRA [Suspect]
     Indication: HIV INFECTION
     Dates: start: 20090529, end: 20090608
  2. TRIZIVIR [Concomitant]
     Indication: HIV INFECTION
     Route: 048
     Dates: start: 20020101, end: 20090528
  3. ISENTRESS [Concomitant]
     Indication: HIV INFECTION
     Route: 048
     Dates: start: 20090609, end: 20090612
  4. TRUVADA [Concomitant]
     Indication: HIV INFECTION
     Route: 048
     Dates: start: 20090529, end: 20090612
  5. CARDENTIEL [Concomitant]
     Indication: DRUG USE FOR UNKNOWN INDICATION
  6. PAROXETINE HCL [Concomitant]
     Indication: DRUG USE FOR UNKNOWN INDICATION
  7. LEXOMIL [Concomitant]
     Indication: DRUG USE FOR UNKNOWN INDICATION

REACTIONS (5)
  - COUGH [None]
  - DIARRHOEA [None]
  - HEPATITIS [None]
  - NAUSEA [None]
  - RHABDOMYOLYSIS [None]
